FAERS Safety Report 18618184 (Version 2)
Quarter: 2021Q4

REPORT INFORMATION
  Report Type: Report from Study
  Country: US (occurrence: US)
  Receive Date: 20201215
  Receipt Date: 20211001
  Transmission Date: 20220303
  Serious: No
  Sender: FDA-Public Use
  Company Number: US-TAKEDA-2020TUS056928

PATIENT
  Sex: Male
  Weight: 110.67 kg

DRUGS (14)
  1. HUMAN IMMUNOGLOBULIN G [Suspect]
     Active Substance: HUMAN IMMUNOGLOBULIN G
     Indication: Congenital hypogammaglobulinaemia
     Dosage: 45 GRAM, Q4WEEKS
     Route: 042
     Dates: start: 20200602
  2. LEVOTHYROXINE [Concomitant]
     Active Substance: LEVOTHYROXINE
  3. LISINOPRIL [Concomitant]
     Active Substance: LISINOPRIL
  4. ACETAMINOPHEN [Concomitant]
     Active Substance: ACETAMINOPHEN
  5. DIPHENHYDRAMINE [Concomitant]
     Active Substance: DIPHENHYDRAMINE
  6. HEPARIN [Concomitant]
     Active Substance: HEPARIN SODIUM
  7. HYDROCORTISONE [Concomitant]
     Active Substance: HYDROCORTISONE
  8. SODIUM CHLORIDE [Concomitant]
     Active Substance: SODIUM CHLORIDE
  9. EPINEPHRINE [Concomitant]
     Active Substance: EPINEPHRINE
  10. LMX4 [Concomitant]
     Active Substance: LIDOCAINE
  11. VITAMIN B12 [Concomitant]
     Active Substance: CYANOCOBALAMIN
  12. VITAMIN D3 [Concomitant]
     Active Substance: CHOLECALCIFEROL
  13. VITAMINS [Concomitant]
     Active Substance: VITAMINS
  14. BIOMEGA [Concomitant]
     Active Substance: CAPSAICIN

REACTIONS (2)
  - SARS-CoV-2 test positive [Unknown]
  - Gout [Recovering/Resolving]
